FAERS Safety Report 23711974 (Version 1)
Quarter: 2024Q2

REPORT INFORMATION
  Report Type: Spontaneous
  Country: US (occurrence: None)
  Receive Date: 20240405
  Receipt Date: 20240405
  Transmission Date: 20240716
  Serious: Yes (Hospitalization)
  Sender: FDA-Public Use
  Company Number: US-ROCHE-3522135

PATIENT
  Age: 54 Year
  Sex: Female
  Weight: 83.082 kg

DRUGS (9)
  1. ACTEMRA [Suspect]
     Active Substance: TOCILIZUMAB
     Indication: Felty^s syndrome
     Dosage: STRENGTH: 162MG/0.9ML
     Route: 058
     Dates: start: 20230601
  2. ACTEMRA [Suspect]
     Active Substance: TOCILIZUMAB
  3. ACTEMRA [Suspect]
     Active Substance: TOCILIZUMAB
     Indication: Scleroderma
  4. ACTEMRA [Suspect]
     Active Substance: TOCILIZUMAB
  5. CELLCEPT [Suspect]
     Active Substance: MYCOPHENOLATE MOFETIL
     Indication: Scleroderma
     Route: 048
     Dates: start: 2020
  6. GABAPENTIN [Concomitant]
     Active Substance: GABAPENTIN
  7. FOLIC ACID [Concomitant]
     Active Substance: FOLIC ACID
  8. REVATIO [Concomitant]
     Active Substance: SILDENAFIL CITRATE
  9. PANTOPRAZOLE [Concomitant]
     Active Substance: PANTOPRAZOLE

REACTIONS (9)
  - COVID-19 [Recovered/Resolved]
  - Device defective [Unknown]
  - Drug delivery system malfunction [Unknown]
  - Off label use [Unknown]
  - Pain [Not Recovered/Not Resolved]
  - Dyspepsia [Not Recovered/Not Resolved]
  - Raynaud^s phenomenon [Unknown]
  - Product dose omission issue [Unknown]
  - Wrong technique in product usage process [Unknown]

NARRATIVE: CASE EVENT DATE: 20200101
